FAERS Safety Report 15939311 (Version 2)
Quarter: 2019Q1

REPORT INFORMATION
  Report Type: Spontaneous
  Country: US (occurrence: US)
  Receive Date: 20190208
  Receipt Date: 20190227
  Transmission Date: 20190417
  Serious: Yes (Other)
  Sender: FDA-Public Use
  Company Number: US-ASTRAZENECA-2019SE10966

PATIENT
  Sex: Male
  Weight: 102.1 kg

DRUGS (9)
  1. PREVACID [Suspect]
     Active Substance: LANSOPRAZOLE
     Route: 065
     Dates: start: 20110101, end: 20180730
  2. LASIX [Concomitant]
     Active Substance: FUROSEMIDE
  3. CLONIDINE. [Concomitant]
     Active Substance: CLONIDINE
  4. CYCLOBENZAPRINE. [Concomitant]
     Active Substance: CYCLOBENZAPRINE
  5. METOPROLOL. [Concomitant]
     Active Substance: METOPROLOL
  6. LOVAZA [Concomitant]
     Active Substance: OMEGA-3-ACID ETHYL ESTERS
  7. NEXIUM [Suspect]
     Active Substance: ESOMEPRAZOLE MAGNESIUM
     Route: 048
     Dates: start: 20110101
  8. PRILOSEC [Suspect]
     Active Substance: OMEPRAZOLE MAGNESIUM
     Route: 048
     Dates: start: 20110101
  9. NEURONTIN [Concomitant]
     Active Substance: GABAPENTIN

REACTIONS (5)
  - Renal failure [Unknown]
  - Chronic kidney disease [Unknown]
  - Hyperchlorhydria [Unknown]
  - Renal injury [Unknown]
  - Acute kidney injury [Unknown]
